FAERS Safety Report 6945258-X (Version None)
Quarter: 2010Q3

REPORT INFORMATION
  Report Type: 
  Country: None (occurrence: None)
  Receive Date: 20100827
  Receipt Date: 20100721
  Transmission Date: 20110219
  Serious: No
  Sender: FDA-Public Use
  Company Number: US-KINGPHARMUSA00001-K201001037

PATIENT
  Age: 89 Year
  Sex: Male

DRUGS (6)
  1. FLECTOR [Suspect]
     Indication: BACK PAIN
     Dosage: UNK PATCH, UNK
     Route: 061
  2. VOLTAREN [Suspect]
     Indication: JOINT SPRAIN
     Dosage: UNK
     Route: 061
  3. VOLTAREN [Suspect]
     Indication: SWELLING
  4. LEVOTHYROXINE [Concomitant]
     Dosage: UNK
  5. AMLODIPINE [Concomitant]
     Dosage: UNK
  6. VITAMINS [Concomitant]
     Dosage: UNK

REACTIONS (3)
  - DRUG INEFFECTIVE [None]
  - PAIN [None]
  - VISION BLURRED [None]
